FAERS Safety Report 14900051 (Version 1)
Quarter: 2018Q2

REPORT INFORMATION
  Report Type: Spontaneous
  Country: FR (occurrence: FR)
  Receive Date: 20180516
  Receipt Date: 20180516
  Transmission Date: 20180711
  Serious: No
  Sender: FDA-Public Use
  Company Number: FR-MERCK KGAA-2047873

PATIENT
  Age: 83 Year
  Sex: Female

DRUGS (1)
  1. NOVOTHYROX [Suspect]
     Active Substance: LEVOTHYROXINE SODIUM
     Indication: PRODUCT USED FOR UNKNOWN INDICATION

REACTIONS (21)
  - Depressed mood [None]
  - Haematocrit decreased [None]
  - Glomerular filtration rate decreased [None]
  - Loss of personal independence in daily activities [None]
  - Onychoclasis [None]
  - Trichorrhexis [None]
  - Myalgia [None]
  - Asthenia [None]
  - Thrombocytopenia [None]
  - Alopecia [None]
  - High density lipoprotein decreased [None]
  - Total cholesterol/HDL ratio increased [None]
  - Syncope [None]
  - Arthralgia [None]
  - Fatigue [None]
  - Pain [None]
  - Sleep disorder [None]
  - Blood glucose increased [None]
  - Discomfort [None]
  - Dizziness [None]
  - Fear of falling [None]

NARRATIVE: CASE EVENT DATE: 20170629
